FAERS Safety Report 10149655 (Version 2)
Quarter: 2014Q2

REPORT INFORMATION
  Report Type: Spontaneous
  Country: US (occurrence: US)
  Receive Date: 20140502
  Receipt Date: 20140523
  Transmission Date: 20141212
  Serious: Yes (Other)
  Sender: FDA-Public Use
  Company Number: US-PFIZER INC-2014120963

PATIENT
  Age: 59 Year
  Sex: Female
  Weight: 107.48 kg

DRUGS (7)
  1. XELJANZ [Suspect]
     Indication: RHEUMATOID ARTHRITIS
     Dosage: 5 MG, 2X/DAY
     Route: 048
     Dates: start: 201310, end: 20140425
  2. XELJANZ [Suspect]
     Dosage: 5 MG, 2X/DAY
     Route: 048
     Dates: start: 20130919, end: 20140512
  3. METHOCARBAMOL [Concomitant]
     Indication: PAIN
     Dosage: 750 MG, AS NEEDED (EVERY 8 HOURS )
     Route: 048
     Dates: start: 20140410
  4. METHOCARBAMOL [Concomitant]
     Indication: MUSCLE SPASMS
  5. VITAMIN D [Concomitant]
     Dosage: 400 IU, 1X/DAY
     Route: 048
     Dates: start: 20121214
  6. HUMALOG [Concomitant]
     Dosage: 3 IU, 3X/DAY
     Route: 058
     Dates: start: 20121214
  7. TOPROL XL [Concomitant]
     Dosage: 100MG; 1X/DAY
     Route: 048
     Dates: start: 20121214

REACTIONS (5)
  - Diabetes mellitus inadequate control [Unknown]
  - Hypercholesterolaemia [Unknown]
  - Liver function test abnormal [Unknown]
  - Sleep disorder [Unknown]
  - Weight increased [Unknown]
